FAERS Safety Report 7431764-0 (Version None)
Quarter: 2011Q1

REPORT INFORMATION
  Report Type: 
  Country: None (occurrence: None)
  Receive Date: 20110302
  Receipt Date: 20101026
  Transmission Date: 20110831
  Serious: No
  Sender: FDA-Public Use
  Company Number: 021182

PATIENT
  Sex: Female
  Weight: 93.9 kg

DRUGS (3)
  1. DEXLANSOPRAZOLE [Concomitant]
  2. XANAX [Concomitant]
  3. CIMZIA [Suspect]
     Indication: CROHN'S DISEASE
     Dosage: 400 MG 1X/MONTH SUBCUTANEOUS
     Route: 058
     Dates: start: 20090101

REACTIONS (3)
  - FEELING ABNORMAL [None]
  - OEDEMA PERIPHERAL [None]
  - INCREASED APPETITE [None]
